FAERS Safety Report 12572069 (Version 1)
Quarter: 2016Q3

REPORT INFORMATION
  Report Type: Spontaneous
  Country: SE (occurrence: SE)
  Receive Date: 20160719
  Receipt Date: 20160719
  Transmission Date: 20161109
  Serious: Yes (Other)
  Sender: FDA-Public Use
  Company Number: PHHY2016SE098276

PATIENT
  Age: 54 Year
  Sex: Female

DRUGS (1)
  1. TEGRETOL [Suspect]
     Active Substance: CARBAMAZEPINE
     Indication: FACIAL SPASM
     Route: 065

REACTIONS (3)
  - Product use issue [Unknown]
  - Mental impairment [Unknown]
  - Drug ineffective for unapproved indication [Unknown]
